FAERS Safety Report 5292514-X (Version None)
Quarter: 2007Q2

REPORT INFORMATION
  Report Type: 
  Country: None (occurrence: None)
  Receive Date: 20070410
  Receipt Date: 20070329
  Transmission Date: 20071010
  Serious: Yes (Hospitalization)
  Sender: FDA-Public Use
  Company Number: US-PFIZER INC-2007026312

PATIENT
  Sex: Female
  Weight: 61.2 kg

DRUGS (11)
  1. CHANTIX [Suspect]
     Indication: SMOKING CESSATION THERAPY
     Dosage: FREQ:DAILY
     Route: 048
  2. NEURONTIN [Concomitant]
  3. FENTANYL [Concomitant]
     Route: 062
  4. OXYCODONE HCL [Concomitant]
  5. CYMBALTA [Concomitant]
  6. LASIX [Concomitant]
  7. DYAZIDE [Concomitant]
  8. TOPROL-XL [Concomitant]
  9. NOVOLOG [Concomitant]
  10. LANTUS [Concomitant]
  11. AMITRIPTYLINE HCL [Concomitant]

REACTIONS (1)
  - SKIN ULCER [None]
